FAERS Safety Report 12563103 (Version 1)
Quarter: 2016Q3

REPORT INFORMATION
  Report Type: Spontaneous
  Country: GB (occurrence: GB)
  Receive Date: 20160715
  Receipt Date: 20160715
  Transmission Date: 20161109
  Serious: Yes (Life-Threatening, Hospitalization, Other)
  Sender: FDA-Public Use
  Company Number: GB-MYLANLABS-2016M1028483

PATIENT

DRUGS (13)
  1. GAVISCON ADVANCE [Concomitant]
     Active Substance: POTASSIUM BICARBONATE\SODIUM ALGINATE
     Dosage: UNK
  2. IBUPROFEN. [Concomitant]
     Active Substance: IBUPROFEN
     Dosage: UNK
  3. OMEGA-3 FISH OIL +VITAMIN D [Concomitant]
     Dosage: UNK
  4. PAROXETINE. [Suspect]
     Active Substance: PAROXETINE
     Indication: DEPRESSION
     Dosage: TAPERED FROM 40MG TO ZERO IN SIX WEEKS
     Route: 048
     Dates: start: 19981201, end: 20151201
  5. VITAMIN B COMPLEX [Concomitant]
     Active Substance: CYANOCOBALAMIN\DEXPANTHENOL\NIACINAMIDE\PYRIDOXINE HYDROCHLORIDE\RIBOFLAVIN 5^-PHOSPHATE SODIUM\THIAMINE HYDROCHLORIDE\VITAMIN B COMPLEX
     Dosage: UNK
  6. VITAMIN C [Concomitant]
     Active Substance: ASCORBIC ACID
     Dosage: UNK
  7. MAGNESIUM [Concomitant]
     Active Substance: MAGNESIUM
     Dosage: UNK
  8. VITAMIN D                          /00107901/ [Concomitant]
     Active Substance: ERGOCALCIFEROL
     Dosage: UNK
  9. OMEPRAZOLE. [Concomitant]
     Active Substance: OMEPRAZOLE
     Dosage: UNK
  10. CYCLIZINE HYDROCHLORIDE [Concomitant]
     Active Substance: CYCLIZINE HYDROCHLORIDE
     Indication: NAUSEA
     Dosage: UNK
  11. FORTISIP [Concomitant]
     Active Substance: CARBOHYDRATES\FATTY ACIDS\MINERALS\PROTEIN\VITAMINS
     Dosage: UNK
  12. HYDROXYTRYPTOPHAN [Concomitant]
     Active Substance: OXITRIPTAN
     Dosage: UNK
  13. PROPRANOLOL [Concomitant]
     Active Substance: PROPRANOLOL\PROPRANOLOL HYDROCHLORIDE
     Dosage: UNK

REACTIONS (30)
  - Decreased appetite [Unknown]
  - Dizziness [Unknown]
  - Hypersensitivity [Unknown]
  - Salivary hypersecretion [Unknown]
  - Suicidal ideation [Unknown]
  - Palpitations [Unknown]
  - Rash [Unknown]
  - Back pain [Unknown]
  - Withdrawal syndrome [Not Recovered/Not Resolved]
  - Hyperacusis [Unknown]
  - Chills [Unknown]
  - Peripheral coldness [Unknown]
  - Visual impairment [Unknown]
  - Condition aggravated [Unknown]
  - Vertigo [Unknown]
  - Depression [Unknown]
  - Hypoaesthesia [Unknown]
  - Photophobia [Unknown]
  - Chest pain [Unknown]
  - Dyschromatopsia [Unknown]
  - Insomnia [Unknown]
  - Vomiting [Unknown]
  - Hypervigilance [Unknown]
  - Dyskinesia [Unknown]
  - Anxiety [Unknown]
  - Thirst [Unknown]
  - Anger [Unknown]
  - Agitation [Unknown]
  - Mood swings [Unknown]
  - Hyperhidrosis [Unknown]

NARRATIVE: CASE EVENT DATE: 20151201
